FAERS Safety Report 6506939-5 (Version None)
Quarter: 2009Q4

REPORT INFORMATION
  Report Type: 
  Country: None (occurrence: None)
  Receive Date: 20091221
  Receipt Date: 20091209
  Transmission Date: 20100525
  Serious: Yes (Other)
  Sender: FDA-Public Use
  Company Number: AT-BAYER-200942083GPV

PATIENT
  Sex: Female

DRUGS (2)
  1. MIRENA [Suspect]
     Indication: CONTRACEPTION
     Route: 015
     Dates: start: 20030101, end: 20080101
  2. MIRENA [Suspect]
     Route: 015
     Dates: start: 20080101

REACTIONS (2)
  - HEADACHE [None]
  - MENINGIOMA [None]
